FAERS Safety Report 6569030-8 (Version None)
Quarter: 2010Q1

REPORT INFORMATION
  Report Type: 
  Country: None (occurrence: None)
  Receive Date: 20100203
  Receipt Date: 20100127
  Transmission Date: 20100710
  Serious: Yes (Death)
  Sender: FDA-Public Use
  Company Number: US-GILEAD-2009-0025431

PATIENT
  Sex: Male
  Weight: 86.714 kg

DRUGS (16)
  1. LETAIRIS [Suspect]
     Indication: PULMONARY ARTERIAL HYPERTENSION
     Dates: start: 20090325
  2. DOBUTAMINE HCL [Concomitant]
     Indication: CARDIAC FAILURE
  3. ZOCOR [Concomitant]
  4. LASIX [Concomitant]
  5. ADCIRCA [Concomitant]
  6. COMBIVENT [Concomitant]
  7. ALBUTEROL [Concomitant]
  8. TEMAZEPAM [Concomitant]
  9. GLIPIZIDE [Concomitant]
  10. METFORMIN [Concomitant]
  11. ECOTRIN [Concomitant]
  12. LUPRON [Concomitant]
  13. POTASSIUM CHLORIDE [Concomitant]
  14. ADVIL [Concomitant]
  15. MULTI-VITAMINS [Concomitant]
  16. OXYGEN [Concomitant]

REACTIONS (1)
  - CARDIAC FAILURE CONGESTIVE [None]
